FAERS Safety Report 4718467-8 (Version None)
Quarter: 2005Q3

REPORT INFORMATION
  Report Type: 
  Country: None (occurrence: None)
  Receive Date: 20050719
  Receipt Date: 20050411
  Transmission Date: 20060218
  Serious: Yes (Other)
  Sender: FDA-Public Use
  Company Number: 2005024467

PATIENT
  Sex: Female

DRUGS (1)
  1. CELEBREX [Suspect]
     Indication: ILL-DEFINED DISORDER
     Dosage: (2 IN 1 D),

REACTIONS (3)
  - ADVERSE EVENT [None]
  - MYOCARDIAL INFARCTION [None]
  - WEIGHT DECREASED [None]
